FAERS Safety Report 6906013-X (Version None)
Quarter: 2010Q3

REPORT INFORMATION
  Report Type: 
  Country: None (occurrence: None)
  Receive Date: 20100804
  Receipt Date: 20100722
  Transmission Date: 20110219
  Serious: Yes (Other)
  Sender: FDA-Public Use
  Company Number: PHHY2010GR48906

PATIENT
  Age: 47 Year
  Sex: Male

DRUGS (7)
  1. ENTACAPONE [Suspect]
     Indication: PARKINSON'S DISEASE
     Dosage: UNK
  2. AMANTADINE HCL [Suspect]
  3. LEVODOPA W/BENSERAZIDE/ [Suspect]
     Indication: PARKINSON'S DISEASE
     Dosage: 500 MG, QD
  4. LEVODOPA W/BENSERAZIDE/ [Suspect]
     Dosage: 100 MG, TID
  5. PRAMIPEXOLE DIHYDROCHLORIDE [Suspect]
     Indication: PARKINSON'S DISEASE
     Dosage: 2.1 MG, QD
  6. RASAGILINE [Suspect]
  7. ROTIGOTINE [Concomitant]
     Dosage: 8 MG, QD

REACTIONS (4)
  - DELUSION [None]
  - FEELING ABNORMAL [None]
  - ILLUSION [None]
  - PERSECUTORY DELUSION [None]
